FAERS Safety Report 8446454-5 (Version None)
Quarter: 2012Q2

REPORT INFORMATION
  Report Type: 
  Country: None (occurrence: None)
  Receive Date: 20120618
  Receipt Date: 20120328
  Transmission Date: 20120825
  Serious: No
  Sender: FDA-Public Use
  Company Number: US-TEVA-330423USA

PATIENT
  Sex: Female

DRUGS (1)
  1. ACTIQ [Suspect]
     Dosage: EVERY 4-5 HOURS
     Route: 002

REACTIONS (3)
  - PAIN [None]
  - OFF LABEL USE [None]
  - SLEEP DISORDER [None]
